FAERS Safety Report 8589759 (Version 2)
Quarter: 2012Q4

REPORT INFORMATION
  Report Type: 
  Country: FR (occurrence: FR)
  Receive Date: 20120601
  Receipt Date: 20120925
  Transmission Date: 20130627
  Serious: Yes (Hospitalization, Other)
  Sender: FDA-Public Use
  Company Number: FR-RANBAXY-2012RR-56177

PATIENT
  Age: 9 Year
  Sex: Male
  Weight: 30 kg

DRUGS (6)
  1. RISPERIDONE [Suspect]
     Indication: AGGRESSION
     Dosage: 2 mg/day
     Route: 065
  2. RISPERIDONE [Suspect]
     Indication: PSYCHOMOTOR HYPERACTIVITY
  3. METHYLPHENIDATE [Suspect]
     Indication: AGGRESSION
     Dosage: 20 mg/day
     Route: 065
  4. METHYLPHENIDATE [Suspect]
     Indication: PSYCHOMOTOR HYPERACTIVITY
  5. METHYLPHENIDATE [Suspect]
     Indication: AGGRESSION
     Dosage: 36 mg/day
     Route: 065
  6. METHYLPHENIDATE [Suspect]
     Indication: PSYCHOMOTOR HYPERACTIVITY

REACTIONS (3)
  - Hyperthermia [Unknown]
  - Dyskinesia [Unknown]
  - Withdrawal syndrome [Unknown]
